FAERS Safety Report 21283428 (Version 1)
Quarter: 2022Q3

REPORT INFORMATION
  Report Type: Spontaneous
  Country: US (occurrence: US)
  Receive Date: 20220901
  Receipt Date: 20220901
  Transmission Date: 20221027
  Serious: No
  Sender: FDA-Public Use
  Company Number: US-BIOGEN-2022BI01151534

PATIENT
  Sex: Female

DRUGS (1)
  1. TECFIDERA [Suspect]
     Active Substance: DIMETHYL FUMARATE
     Indication: Multiple sclerosis
     Route: 050
     Dates: start: 20160129

REACTIONS (3)
  - White blood cell count decreased [Not Recovered/Not Resolved]
  - White blood cell count abnormal [Not Recovered/Not Resolved]
  - Multiple sclerosis [Not Recovered/Not Resolved]
